FAERS Safety Report 10771131 (Version 1)
Quarter: 2015Q1

REPORT INFORMATION
  Report Type: Spontaneous
  Country: US (occurrence: US)
  Receive Date: 20150206
  Receipt Date: 20150206
  Transmission Date: 20150721
  Serious: No
  Sender: FDA-Public Use
  Company Number: US-GLAXOSMITHKLINE-US2014GSK049379

PATIENT
  Sex: Male

DRUGS (7)
  1. GARLIC. [Concomitant]
     Active Substance: GARLIC
  2. VITAMIN B [Concomitant]
     Active Substance: VITAMIN B
  3. VITAMIN C [Concomitant]
     Active Substance: ASCORBIC ACID
  4. VITAMIN E [Concomitant]
     Active Substance: .ALPHA.-TOCOPHEROL
  5. SELENIUM [Concomitant]
     Active Substance: SELENIUM
  6. ECOTRIN [Concomitant]
     Active Substance: ASPIRIN
  7. VOTRIENT [Suspect]
     Active Substance: PAZOPANIB HYDROCHLORIDE
     Indication: RENAL CANCER
     Dosage: 800 MG, QD
     Route: 048
     Dates: start: 20141027

REACTIONS (2)
  - Constipation [Unknown]
  - Diarrhoea [Unknown]
